FAERS Safety Report 19677379 (Version 1)
Quarter: 2021Q3

REPORT INFORMATION
  Report Type: Spontaneous
  Country: FR (occurrence: FR)
  Receive Date: 20210810
  Receipt Date: 20210810
  Transmission Date: 20211014
  Serious: Yes (Hospitalization, Other)
  Sender: FDA-Public Use
  Company Number: FR-AUROBINDO-AUR-APL-2021-033861

PATIENT
  Age: 65 Year
  Sex: Female
  Weight: 60 kg

DRUGS (13)
  1. KYPROLIS [Suspect]
     Active Substance: CARFILZOMIB
     Indication: CRYOGLOBULINAEMIA
  2. FOLINIC ACID [Suspect]
     Active Substance: LEUCOVORIN
     Indication: VITAMIN SUPPLEMENTATION
     Dosage: 5 MILLIGRAM, ONCE A DAY
     Route: 048
  3. KYPROLIS [Suspect]
     Active Substance: CARFILZOMIB
     Indication: PLASMA CELL MYELOMA
     Dosage: 86 MILLIGRAM (J1, J2 ET J8, J9)
     Route: 041
     Dates: start: 20210118, end: 20210323
  4. DEXAMETHASONE ACETATE [Suspect]
     Active Substance: DEXAMETHASONE ACETATE
     Indication: PLASMA CELL MYELOMA
     Dosage: UNK
     Route: 041
     Dates: start: 20210118, end: 202103
  5. DEXAMETHASONE ACETATE [Suspect]
     Active Substance: DEXAMETHASONE ACETATE
     Indication: CRYOGLOBULINAEMIA
  6. MIRTAZAPINE. [Suspect]
     Active Substance: MIRTAZAPINE
     Indication: DEPRESSION
     Dosage: 30 MILLIGRAM, ONCE A DAY
     Route: 048
  7. OXYCODONE [Suspect]
     Active Substance: OXYCODONE
     Indication: PAIN
     Dosage: 140 MILLIGRAM, ONCE A DAY
     Route: 048
  8. DARZALEX [Suspect]
     Active Substance: DARATUMUMAB
     Indication: CRYOGLOBULINAEMIA
     Dosage: 920 MILLIGRAM, EVERY WEEK
     Route: 041
     Dates: start: 20210210, end: 20210329
  9. SERESTA [Suspect]
     Active Substance: OXAZEPAM
     Indication: ANXIETY
     Dosage: 80 MILLIGRAM, ONCE A DAY
     Route: 048
  10. DARZALEX [Suspect]
     Active Substance: DARATUMUMAB
     Indication: PLASMA CELL MYELOMA
     Dosage: 1800 MILLIGRAM, EVERY TWO WEEKS
     Route: 058
     Dates: start: 20210413
  11. SULFAMETHOXAZOLE [Suspect]
     Active Substance: SULFAMETHOXAZOLE
     Indication: OPPORTUNISTIC INFECTION PROPHYLAXIS
     Dosage: 800 MILLIGRAM, EVERY WEEK
     Route: 048
  12. HYDROCORTISONE ACEPONATE [Suspect]
     Active Substance: HYDROCORTISONE ACEPONATE
     Indication: SECONDARY ADRENOCORTICAL INSUFFICIENCY
     Dosage: 30 MILLIGRAM, ONCE A DAY
     Route: 048
  13. TRIMETHOPRIME [Suspect]
     Active Substance: TRIMETHOPRIM
     Indication: OPPORTUNISTIC INFECTION PROPHYLAXIS
     Dosage: 160 MILLIGRAM, EVERY WEEK
     Route: 048

REACTIONS (1)
  - Uveitis [Not Recovered/Not Resolved]

NARRATIVE: CASE EVENT DATE: 202104
